FAERS Safety Report 4641755-0 (Version None)
Quarter: 2005Q2

REPORT INFORMATION
  Report Type: 
  Country: None (occurrence: None)
  Receive Date: 20050421
  Receipt Date: 20050407
  Transmission Date: 20051028
  Serious: Yes (Hospitalization, Other)
  Sender: FDA-Public Use
  Company Number: 2005056777

PATIENT
  Sex: Male

DRUGS (1)
  1. CELECOXIB (CELECOXIB) [Suspect]
     Indication: ARTHRALGIA
     Dosage: 400 MG (1 IN 1 D), ORAL
     Route: 048

REACTIONS (9)
  - ANGIOPATHY [None]
  - BACK PAIN [None]
  - CORONARY ARTERY DISEASE [None]
  - DIVERTICULITIS [None]
  - DRUG HYPERSENSITIVITY [None]
  - HEPATIC ENZYME INCREASED [None]
  - MYALGIA [None]
  - NEOPLASM MALIGNANT [None]
  - NEPHROLITHIASIS [None]
